FAERS Safety Report 8779281 (Version 1)
Quarter: 2012Q4

REPORT INFORMATION
  Report Type: Report from Study
  Country: CA (occurrence: CA)
  Receive Date: 20120912
  Receipt Date: 20120912
  Transmission Date: 20130627
  Serious: Yes (Death)
  Sender: FDA-Public Use
  Company Number: CA-ROCHE-1122351

PATIENT
  Sex: Female
  Weight: 81.72 kg

DRUGS (2)
  1. XELODA [Suspect]
     Indication: BILE DUCT CANCER
     Dosage: unknown
     Route: 048
     Dates: start: 201204, end: 2012
  2. FRAGMIN [Concomitant]

REACTIONS (1)
  - Death [Fatal]
